FAERS Safety Report 7232394-6 (Version None)
Quarter: 2011Q1

REPORT INFORMATION
  Report Type: 
  Country: None (occurrence: None)
  Receive Date: 20110105
  Receipt Date: 20101222
  Transmission Date: 20110831
  Serious: Yes (Hospitalization)
  Sender: FDA-Public Use
  Company Number: WAES 1012USA03564

PATIENT
  Age: 50 Year
  Sex: Male

DRUGS (9)
  1. DECADRON [Suspect]
     Indication: MULTIPLE MYELOMA
     Dosage: 20 MG/DAILY/PO
     Route: 048
     Dates: start: 20100919
  2. LENALIDOMIDE [Suspect]
     Dosage: 25 MG/DAILY/PO
     Route: 048
     Dates: start: 20100927
  3. NEURONTIN [Concomitant]
  4. XANAX [Concomitant]
  5. ELOTUZUMAB UNK [Suspect]
     Indication: MULTIPLE MYELOMA
     Dosage: 20 MG/KG/DAILY/IV
     Route: 042
     Dates: start: 20100920
  6. ZOFRAN [Concomitant]
  7. PERCOCET [Concomitant]
  8. REVLIMID [Concomitant]
  9. AMBIEN [Concomitant]

REACTIONS (13)
  - CARDIAC DISORDER [None]
  - COMPUTERISED TOMOGRAM THORAX ABNORMAL [None]
  - BONE LESION [None]
  - PULMONARY ARTERIAL HYPERTENSION [None]
  - PULMONARY EMBOLISM [None]
  - PULMONARY INFARCTION [None]
  - PNEUMONIA [None]
  - SPINAL COMPRESSION FRACTURE [None]
  - ATRIAL THROMBOSIS [None]
  - RIGHT VENTRICULAR DYSFUNCTION [None]
  - THROMBOSIS IN DEVICE [None]
  - DEEP VEIN THROMBOSIS [None]
  - ATELECTASIS [None]
